FAERS Safety Report 25302572 (Version 1)
Quarter: 2025Q2

REPORT INFORMATION
  Report Type: Spontaneous
  Country: US (occurrence: US)
  Receive Date: 20250512
  Receipt Date: 20250512
  Transmission Date: 20250716
  Serious: Yes (Hospitalization)
  Sender: DOMPE FARMACEUTICI
  Company Number: US-FARMAPROD-202505-1467

PATIENT
  Sex: Female

DRUGS (16)
  1. OXERVATE [Suspect]
     Active Substance: CENEGERMIN-BKBJ
     Indication: Neurotrophic keratopathy
     Route: 047
     Dates: start: 20250318
  2. MOXIFLOXACIN [Concomitant]
     Active Substance: MOXIFLOXACIN
  3. VALACYCLOVIR [Concomitant]
     Active Substance: VALACYCLOVIR HYDROCHLORIDE
  4. TORSEMIDE [Concomitant]
     Active Substance: TORSEMIDE
  5. RENVELA [Concomitant]
     Active Substance: SEVELAMER CARBONATE
  6. VITAMINS [Concomitant]
     Active Substance: VITAMINS
  7. OXYCODONE AND ACETAMINOPHEN [Concomitant]
     Active Substance: ACETAMINOPHEN\OXYCODONE HYDROCHLORIDE
  8. NUCYNTA [Concomitant]
     Active Substance: TAPENTADOL HYDROCHLORIDE
  9. OXYCODONE HYDROCHLORIDE [Concomitant]
     Active Substance: OXYCODONE HYDROCHLORIDE
  10. LEVOTHYROXINE SODIUM [Concomitant]
     Active Substance: LEVOTHYROXINE SODIUM
  11. HUMALOG [Concomitant]
     Active Substance: INSULIN LISPRO
  12. HEPARIN SODIUM [Concomitant]
     Active Substance: HEPARIN SODIUM
  13. GVOKE HYPOPEN 1-PACK [Concomitant]
  14. GABAPENTIN [Concomitant]
     Active Substance: GABAPENTIN
  15. FLUCONAZOLE [Concomitant]
     Active Substance: FLUCONAZOLE
  16. CARVEDILOL [Concomitant]
     Active Substance: CARVEDILOL

REACTIONS (1)
  - Hospitalisation [Recovered/Resolved]
